FAERS Safety Report 9255274 (Version 2)
Quarter: 2013Q2

REPORT INFORMATION
  Report Type: Spontaneous
  Country: US (occurrence: US)
  Receive Date: 20130425
  Receipt Date: 20130528
  Transmission Date: 20140414
  Serious: Yes (Other)
  Sender: FDA-Public Use
  Company Number: US-MERCK-1304USA015079

PATIENT
  Sex: 0

DRUGS (2)
  1. MK-0000 (111) [Suspect]
     Dosage: UNK
  2. ONGLYZA [Suspect]

REACTIONS (1)
  - Pancreatic carcinoma [Unknown]
